FAERS Safety Report 21369690 (Version 1)
Quarter: 2022Q3

REPORT INFORMATION
  Report Type: Spontaneous
  Country: US (occurrence: None)
  Receive Date: 20220922
  Receipt Date: 20220922
  Transmission Date: 20221027
  Serious: No
  Sender: FDA-Public Use
  Company Number: None

PATIENT
  Age: 68 Year
  Sex: Female
  Weight: 54 kg

DRUGS (3)
  1. IBANDRONATE SODIUM [Suspect]
     Active Substance: IBANDRONATE SODIUM
     Indication: Osteoporosis
     Dosage: OTHER QUANTITY : 1 TABLET(S);?OTHER FREQUENCY : 1X MONTHLY;?
     Route: 048
     Dates: start: 20220829, end: 20220829
  2. vaginal estradiol [Concomitant]
  3. Magnesium D3 [Concomitant]

REACTIONS (14)
  - Gastritis [None]
  - Gastrooesophageal reflux disease [None]
  - Arthralgia [None]
  - Myalgia [None]
  - Muscle spasms [None]
  - Asthenia [None]
  - Pain in jaw [None]
  - Arthralgia [None]
  - Arthralgia [None]
  - Chest pain [None]
  - Osteogenesis imperfecta [None]
  - Pain in extremity [None]
  - Dizziness [None]
  - Abdominal discomfort [None]

NARRATIVE: CASE EVENT DATE: 20220829
